FAERS Safety Report 4870791-4 (Version None)
Quarter: 2006Q1

REPORT INFORMATION
  Report Type: 
  Country: None (occurrence: None)
  Receive Date: 20060103
  Receipt Date: 20050901
  Transmission Date: 20060701
  Serious: Yes (Death, Hospitalization, Other)
  Sender: FDA-Public Use
  Company Number: US-MERCK-0509USA00451

PATIENT
  Age: 76 Year
  Sex: Male
  Weight: 88 kg

DRUGS (9)
  1. VIOXX [Suspect]
     Indication: SPINAL OSTEOARTHRITIS
     Route: 048
     Dates: start: 20010703, end: 20020211
  2. VIOXX [Suspect]
     Indication: BACK PAIN
     Route: 048
     Dates: start: 20010703, end: 20020211
  3. AMITRIPTYLIN [Concomitant]
     Route: 065
  4. DOXAZOSIN MESYLATE [Concomitant]
     Route: 065
     Dates: start: 20010912, end: 20020201
  5. NITROGLYCERIN [Concomitant]
     Route: 065
  6. PLAVIX [Concomitant]
     Route: 065
     Dates: start: 20010716, end: 20020301
  7. PRAVACHOL [Concomitant]
     Indication: BLOOD CHOLESTEROL INCREASED
     Route: 065
     Dates: start: 20010827, end: 20040701
  8. REMERON [Concomitant]
     Route: 065
  9. ADALAT [Concomitant]
     Route: 065
     Dates: start: 20010926, end: 20020301

REACTIONS (28)
  - ACUTE SINUSITIS [None]
  - AORTIC VALVE INCOMPETENCE [None]
  - AORTIC VALVE STENOSIS [None]
  - ARTERIOSCLEROSIS CORONARY ARTERY [None]
  - BRONCHITIS ACUTE [None]
  - BURSITIS [None]
  - CARDIAC FAILURE CONGESTIVE [None]
  - CARDIAC VALVE DISEASE [None]
  - CAROTID ARTERY STENOSIS [None]
  - CORONARY ARTERY DISEASE [None]
  - DRY EYE [None]
  - EYE IRRITATION [None]
  - FATIGUE [None]
  - INTERVERTEBRAL DISC DEGENERATION [None]
  - LIPOMA [None]
  - LYMPHADENOPATHY MEDIASTINAL [None]
  - MYOCARDIAL INFARCTION [None]
  - NOCTURIA [None]
  - OEDEMA [None]
  - PNEUMONIA [None]
  - PSEUDOPHAKIA [None]
  - PULMONARY MASS [None]
  - RESPIRATORY FAILURE [None]
  - RHINITIS ALLERGIC [None]
  - SEASONAL ALLERGY [None]
  - SINUSITIS [None]
  - SKIN LACERATION [None]
  - VITAMIN B12 DEFICIENCY [None]
